FAERS Safety Report 11813006 (Version 3)
Quarter: 2016Q1

REPORT INFORMATION
  Report Type: Spontaneous
  Country: IT (occurrence: IT)
  Receive Date: 20151209
  Receipt Date: 20160205
  Transmission Date: 20160525
  Serious: Yes (Other)
  Sender: FDA-Public Use
  Company Number: IT-ACCORD-029545

PATIENT
  Age: 36 Year
  Sex: Male
  Weight: 77 kg

DRUGS (8)
  1. OXALIPLATIN. [Suspect]
     Active Substance: OXALIPLATIN
     Indication: ADENOCARCINOMA GASTRIC
     Route: 042
     Dates: start: 20150126
  2. TAXOTERE [Suspect]
     Active Substance: DOCETAXEL
     Indication: ADENOCARCINOMA GASTRIC
     Route: 042
     Dates: start: 20150126
  3. LEDERFOLIN [Suspect]
     Active Substance: LEUCOVORIN CALCIUM
     Indication: ADENOCARCINOMA GASTRIC
     Route: 042
     Dates: start: 20150126, end: 20150420
  4. LEVOFOLINIC ACID [Concomitant]
     Active Substance: LEVOLEUCOVORIN
     Route: 042
     Dates: start: 20150126, end: 20150316
  5. FLUOROURACIL. [Suspect]
     Active Substance: FLUOROURACIL
     Indication: ADENOCARCINOMA GASTRIC
     Route: 041
     Dates: start: 20150126
  6. RIOPAN [Concomitant]
     Active Substance: MAGALDRATE
  7. ZANTAC [Concomitant]
     Active Substance: RANITIDINE HYDROCHLORIDE
  8. LUCEN [Concomitant]
     Active Substance: ESOMEPRAZOLE

REACTIONS (12)
  - Epistaxis [Recovering/Resolving]
  - Vomiting [Recovering/Resolving]
  - Neurotoxicity [Unknown]
  - Paraesthesia [Not Recovered/Not Resolved]
  - Skin toxicity [Unknown]
  - Off label use [Unknown]
  - Abdominal pain [Unknown]
  - Nausea [Recovering/Resolving]
  - Gastrointestinal toxicity [Unknown]
  - Nail discolouration [Unknown]
  - Neutropenia [Recovering/Resolving]
  - Muscle spasms [Recovering/Resolving]

NARRATIVE: CASE EVENT DATE: 20150128
